FAERS Safety Report 14311410 (Version 1)
Quarter: 2017Q4

REPORT INFORMATION
  Report Type: Spontaneous
  Country: US (occurrence: US)
  Receive Date: 20171221
  Receipt Date: 20171221
  Transmission Date: 20180321
  Serious: No
  Sender: FDA-Public Use
  Company Number: US-NOVEN PHARMACEUTICALS, INC.-US2017000835

PATIENT

DRUGS (4)
  1. LIPITOR [Concomitant]
     Active Substance: ATORVASTATIN CALCIUM
  2. PROMETRIUM [Concomitant]
     Active Substance: PROGESTERONE
  3. MINIVELLE [Suspect]
     Active Substance: ESTRADIOL
     Indication: ATROPHIC VULVOVAGINITIS
     Dosage: 0.05 MG, UNKNOWN
     Route: 062
     Dates: start: 201701
  4. HUMERA [Concomitant]
     Active Substance: ADALIMUMAB

REACTIONS (8)
  - Product quality issue [Unknown]
  - Phlebitis superficial [Unknown]
  - Wrong technique in product usage process [Unknown]
  - Pain in extremity [Unknown]
  - Off label use [Unknown]
  - Feeling hot [Recovered/Resolved]
  - Skin induration [Unknown]
  - Erythema [Recovered/Resolved]
